FAERS Safety Report 13453995 (Version 1)
Quarter: 2017Q2

REPORT INFORMATION
  Report Type: Spontaneous
  Country: US (occurrence: US)
  Receive Date: 20170418
  Receipt Date: 20170418
  Transmission Date: 20170830
  Serious: No
  Sender: FDA-Public Use
  Company Number: US-ALLERGAN-1679041US

PATIENT
  Age: 65 Year
  Sex: Female

DRUGS (1)
  1. LUMIGAN [Suspect]
     Active Substance: BIMATOPROST
     Indication: GLAUCOMA
     Dosage: UNK UNK, QHS
     Route: 047
     Dates: start: 20161129

REACTIONS (3)
  - Erythema [Recovered/Resolved]
  - Erythema of eyelid [Recovered/Resolved]
  - Hypersensitivity [Recovered/Resolved]
